FAERS Safety Report 6518034-X (Version None)
Quarter: 2009Q4

REPORT INFORMATION
  Report Type: 
  Country: None (occurrence: None)
  Receive Date: 20091224
  Receipt Date: 20091214
  Transmission Date: 20100525
  Serious: Yes (Other)
  Sender: FDA-Public Use
  Company Number: FR-ROCHE-676174

PATIENT
  Sex: Female
  Weight: 69 kg

DRUGS (2)
  1. XELODA [Suspect]
     Indication: BREAST CANCER
     Route: 065
     Dates: start: 20080101
  2. TYVERB [Concomitant]
     Dates: start: 20080101

REACTIONS (1)
  - DRUG TOXICITY [None]
